FAERS Safety Report 6256345-6 (Version None)
Quarter: 2009Q3

REPORT INFORMATION
  Report Type: 
  Country: None (occurrence: None)
  Receive Date: 20090706
  Receipt Date: 20090622
  Transmission Date: 20100115
  Serious: Yes (Other)
  Sender: FDA-Public Use
  Company Number: TW-ROCHE-639640

PATIENT
  Sex: Male

DRUGS (2)
  1. PEGASYS [Suspect]
     Indication: HEPATITIS C
     Route: 065
     Dates: start: 20080101, end: 20090101
  2. ROBATROL [Suspect]
     Indication: HEPATITIS C
     Route: 065
     Dates: start: 20080101, end: 20090101

REACTIONS (1)
  - HEPATIC NEOPLASM MALIGNANT [None]
